FAERS Safety Report 8419598-1 (Version None)
Quarter: 2012Q2

REPORT INFORMATION
  Report Type: 
  Country: None (occurrence: None)
  Receive Date: 20120607
  Receipt Date: 20120529
  Transmission Date: 20120825
  Serious: Yes (Hospitalization)
  Sender: FDA-Public Use
  Company Number: US-ABBOTT-12P-163-0936314-00

PATIENT
  Sex: Female
  Weight: 99.88 kg

DRUGS (2)
  1. HUMIRA [Suspect]
     Indication: PSORIASIS
     Dates: start: 20120309, end: 20120330
  2. HUMIRA [Suspect]
     Indication: PSORIATIC ARTHROPATHY

REACTIONS (5)
  - PNEUMONIA [None]
  - PNEUMOCYSTIS JIROVECI PNEUMONIA [None]
  - OXYGEN SATURATION DECREASED [None]
  - RESPIRATORY TRACT INFECTION VIRAL [None]
  - FEELING ABNORMAL [None]
